FAERS Safety Report 6227723-6 (Version None)
Quarter: 2009Q2

REPORT INFORMATION
  Report Type: 
  Country: None (occurrence: None)
  Receive Date: 20090612
  Receipt Date: 20090602
  Transmission Date: 20091009
  Serious: Yes (Hospitalization)
  Sender: FDA-Public Use
  Company Number: US-WATSON-2009-04066

PATIENT
  Age: 34 Year
  Sex: Female

DRUGS (2)
  1. DIPHENHYDRAMINE HCL [Suspect]
     Indication: DRUG ABUSE
     Dosage: 1.5 G, DAILY
     Route: 048
  2. PROPRANOLOL [Suspect]
     Indication: DRUG ABUSE
     Dosage: 300  - 400 MG, DAILY
     Route: 048

REACTIONS (2)
  - DRUG DEPENDENCE [None]
  - WITHDRAWAL SYNDROME [None]
